FAERS Safety Report 9858328 (Version 4)
Quarter: 2014Q1

REPORT INFORMATION
  Report Type: Report from Study
  Country: CA (occurrence: CA)
  Receive Date: 20140131
  Receipt Date: 20140221
  Transmission Date: 20141002
  Serious: Yes (Death)
  Sender: FDA-Public Use
  Company Number: CA-JNJFOC-20140116853

PATIENT
  Sex: Female

DRUGS (4)
  1. ACETAMINOPHEN [Suspect]
     Route: 065
  2. ACETAMINOPHEN [Suspect]
     Indication: PRODUCT USED FOR UNKNOWN INDICATION
     Route: 065
     Dates: start: 19991020, end: 19991024
  3. TYLENOL NO 3 [Suspect]
     Indication: PRODUCT USED FOR UNKNOWN INDICATION
  4. MOTRIN [Suspect]
     Indication: PRODUCT USED FOR UNKNOWN INDICATION

REACTIONS (6)
  - Cardiac arrest [Fatal]
  - Overdose [Fatal]
  - Acute hepatic failure [Fatal]
  - Pneumonia aspiration [Fatal]
  - Brain oedema [Not Recovered/Not Resolved]
  - Encephalopathy [Not Recovered/Not Resolved]
